FAERS Safety Report 8458918-9 (Version None)
Quarter: 2012Q2

REPORT INFORMATION
  Report Type: 
  Country: None (occurrence: None)
  Receive Date: 20120622
  Receipt Date: 20120608
  Transmission Date: 20120825
  Serious: Yes (Death)
  Sender: FDA-Public Use
  Company Number: JP-ROCHE-1068989

PATIENT
  Age: 68 Year
  Sex: Male
  Weight: 71 kg

DRUGS (8)
  1. DOXAZOSIN MESYLATE [Concomitant]
     Indication: HYPERTENSION
     Route: 048
     Dates: start: 20110620
  2. LOCHOL (JAPAN) [Concomitant]
     Indication: HYPERLIPIDAEMIA
     Dosage: DOSAGE IS UNCERTAIN.
     Route: 048
  3. VESICARE [Concomitant]
     Indication: BENIGN PROSTATIC HYPERPLASIA
     Route: 048
  4. TEMODAL [Concomitant]
     Indication: GLIOBLASTOMA
     Route: 048
     Dates: start: 20110202, end: 20111213
  5. URIEF [Concomitant]
     Indication: BENIGN PROSTATIC HYPERPLASIA
     Route: 048
  6. AVASTIN [Suspect]
     Indication: GLIOBLASTOMA
     Route: 041
     Dates: start: 20110309, end: 20110817
  7. AVASTIN [Suspect]
     Route: 041
     Dates: start: 20110817, end: 20111207
  8. ADALAT [Concomitant]
     Indication: HYPERTENSION
     Route: 048
     Dates: start: 20110426

REACTIONS (4)
  - CORONARY ARTERY STENOSIS [None]
  - BLOOD PRESSURE INCREASED [None]
  - MYOCARDIAL ISCHAEMIA [None]
  - DROWNING [None]
